FAERS Safety Report 24443113 (Version 3)
Quarter: 2024Q4

REPORT INFORMATION
  Report Type: Spontaneous
  Country: JP (occurrence: JP)
  Receive Date: 20241016
  Receipt Date: 20241220
  Transmission Date: 20250114
  Serious: Yes (Death, Hospitalization, Other)
  Sender: UNITED THERAPEUTICS
  Company Number: JP-UNITED THERAPEUTICS-UNT-2024-028911

PATIENT
  Age: 84 Year
  Sex: Male

DRUGS (3)
  1. TYVASO [Suspect]
     Active Substance: TREPROSTINIL
     Indication: Pulmonary hypertension
     Dosage: 36 ?G, QID
     Dates: start: 20240828, end: 2024
  2. TYVASO [Suspect]
     Active Substance: TREPROSTINIL
     Dosage: UNK
  3. SILDENAFIL CITRATE [Concomitant]
     Active Substance: SILDENAFIL CITRATE
     Indication: Product used for unknown indication
     Dosage: UNK

REACTIONS (8)
  - Cardiac failure congestive [Fatal]
  - Ventricular tachycardia [Fatal]
  - Pulmonary hypertension [Fatal]
  - Pulmonary fibrosis [Fatal]
  - Condition aggravated [Fatal]
  - Dyspnoea [Unknown]
  - Hypotension [Unknown]
  - Flushing [Unknown]

NARRATIVE: CASE EVENT DATE: 20240101
